FAERS Safety Report 6234695-7 (Version None)
Quarter: 2009Q2

REPORT INFORMATION
  Report Type: 
  Country: None (occurrence: None)
  Receive Date: 20090616
  Receipt Date: 20090616
  Transmission Date: 20091009
  Serious: No
  Sender: FDA-Public Use
  Company Number: None

PATIENT
  Age: 23 Year
  Sex: Female
  Weight: 47.6277 kg

DRUGS (1)
  1. VEXOL [Suspect]
     Indication: CORNEAL INFECTION
     Dosage: 1 DROP EVERY 12 HOURS OPHTHALMIC
     Route: 047
     Dates: start: 20090508, end: 20090515

REACTIONS (11)
  - COUGH [None]
  - DYSPNOEA [None]
  - EYE DISORDER [None]
  - EYELID MARGIN CRUSTING [None]
  - FATIGUE [None]
  - GAIT DISTURBANCE [None]
  - MUSCLE FATIGUE [None]
  - NERVOUS SYSTEM DISORDER [None]
  - NIGHT SWEATS [None]
  - PHARYNGITIS [None]
  - RHINITIS [None]
